FAERS Safety Report 4307221-7 (Version None)
Quarter: 2004Q1

REPORT INFORMATION
  Report Type: 
  Country: None (occurrence: None)
  Receive Date: 20040225
  Receipt Date: 20040217
  Transmission Date: 20041129
  Serious: Yes (Hospitalization)
  Sender: FDA-Public Use
  Company Number: TPA2004A00208

PATIENT
  Age: 70 Year
  Sex: Female
  Weight: 68.0396 kg

DRUGS (5)
  1. ACTOS [Suspect]
     Indication: DIABETES MELLITUS NON-INSULIN-DEPENDENT
     Dosage: 30 MG, 1 IN 1 D, PER 3
     Dates: end: 20030501
  2. AMARYL (GLIMEPIRIDE ( 4 MILLIGRAM, TABLETS) [Concomitant]
  3. GLYSET [Concomitant]
  4. LIPITOR [Concomitant]
  5. METOPROLOL (METOPROLOL) [Concomitant]

REACTIONS (8)
  - BRONCHITIS [None]
  - BRONCHOSPASM [None]
  - CARDIAC FAILURE CONGESTIVE [None]
  - DYSPNOEA [None]
  - HEADACHE [None]
  - INFLUENZA [None]
  - PNEUMONIA [None]
  - WEIGHT DECREASED [None]
